FAERS Safety Report 7226306-9 (Version None)
Quarter: 2011Q1

REPORT INFORMATION
  Report Type: 
  Country: None (occurrence: None)
  Receive Date: 20110114
  Receipt Date: 20110106
  Transmission Date: 20110831
  Serious: Yes (Hospitalization, Other)
  Sender: FDA-Public Use
  Company Number: CHPA2011US00761

PATIENT
  Age: 30 Year
  Sex: Female
  Weight: 80.726 kg

DRUGS (2)
  1. LEVAQUIN [Suspect]
     Indication: CYSTITIS
     Dosage: UNK
     Route: 048
     Dates: start: 20101101, end: 20101101
  2. PREVACID 24 HR [Suspect]
     Indication: OESOPHAGITIS
     Dosage: 15 MG, QD
     Route: 048
     Dates: start: 20101101, end: 20101201

REACTIONS (7)
  - BLOOD PRESSURE INCREASED [None]
  - INSOMNIA [None]
  - DEHYDRATION [None]
  - INTENTIONAL DRUG MISUSE [None]
  - VOMITING [None]
  - NAUSEA [None]
  - DRUG INEFFECTIVE FOR UNAPPROVED INDICATION [None]
